FAERS Safety Report 9064182 (Version 1)
Quarter: 2013Q1

REPORT INFORMATION
  Report Type: Report from Study
  Country: US (occurrence: US)
  Receive Date: 20130131
  Receipt Date: 20130131
  Transmission Date: 20140127
  Serious: No
  Sender: FDA-Public Use
  Company Number: US-ABBOTT-12P-163-1021765-00

PATIENT
  Age: 27 None
  Sex: Female
  Weight: 79.45 kg

DRUGS (3)
  1. HUMIRA [Suspect]
     Indication: ANKYLOSING SPONDYLITIS
     Dates: start: 201210, end: 201210
  2. HUMIRA [Suspect]
     Dates: start: 201210, end: 20121129
  3. DICLOFENAC [Concomitant]
     Indication: PRODUCT USED FOR UNKNOWN INDICATION

REACTIONS (3)
  - Incorrect drug administration duration [Unknown]
  - Back pain [Recovering/Resolving]
  - Oedema peripheral [Recovering/Resolving]
